FAERS Safety Report 8181745-7 (Version None)
Quarter: 2012Q1

REPORT INFORMATION
  Report Type: 
  Country: None (occurrence: None)
  Receive Date: 20120302
  Receipt Date: 20120112
  Transmission Date: 20120608
  Serious: No
  Sender: FDA-Public Use
  Company Number: US-AMGEN-USASP2011068933

PATIENT
  Sex: Female

DRUGS (2)
  1. NPLATE [Suspect]
  2. NPLATE [Suspect]
     Indication: IDIOPATHIC THROMBOCYTOPENIC PURPURA
     Dosage: UNK

REACTIONS (5)
  - INSOMNIA [None]
  - RHINORRHOEA [None]
  - PRODUCTIVE COUGH [None]
  - PLATELET COUNT DECREASED [None]
  - HYPOGLYCAEMIA [None]
